FAERS Safety Report 25075059 (Version 1)
Quarter: 2025Q1

REPORT INFORMATION
  Report Type: Spontaneous
  Country: ES (occurrence: ES)
  Receive Date: 20250313
  Receipt Date: 20250313
  Transmission Date: 20250408
  Serious: Yes (Life-Threatening, Other)
  Sender: ADVANZ PHARMA
  Company Number: ES-ADVANZ PHARMA-202503001848

PATIENT

DRUGS (1)
  1. ZONISAMIDE [Suspect]
     Active Substance: ZONISAMIDE
     Indication: Product used for unknown indication

REACTIONS (2)
  - Epilepsy [Unknown]
  - Off label use [Unknown]

NARRATIVE: CASE EVENT DATE: 20220101
